FAERS Safety Report 5454863-1 (Version None)
Quarter: 2007Q3

REPORT INFORMATION
  Report Type: 
  Country: None (occurrence: None)
  Receive Date: 20070917
  Receipt Date: 20070430
  Transmission Date: 20080115
  Serious: Yes (Other)
  Sender: FDA-Public Use
  Company Number: US-ASTRAZENECA-2006UW19449

PATIENT
  Sex: Male
  Weight: 111.4 kg

DRUGS (6)
  1. SEROQUEL [Suspect]
     Indication: SCHIZOPHRENIA
     Dosage: 200-400 MG
     Route: 048
     Dates: start: 20020301
  2. GEODON [Concomitant]
     Dates: start: 20010701
  3. HALDOL [Concomitant]
     Dates: start: 19760101, end: 19800101
  4. NAVANE [Concomitant]
  5. STELAZINE [Concomitant]
     Dates: start: 19760101, end: 19800101
  6. THORAZINE [Concomitant]
     Dates: start: 19760101, end: 19800101

REACTIONS (5)
  - BLOOD CHOLESTEROL INCREASED [None]
  - BLOOD TRIGLYCERIDES INCREASED [None]
  - HYPERLIPIDAEMIA [None]
  - TARDIVE DYSKINESIA [None]
  - TYPE 2 DIABETES MELLITUS [None]
